FAERS Safety Report 24271185 (Version 5)
Quarter: 2025Q3

REPORT INFORMATION
  Report Type: Spontaneous
  Country: US (occurrence: US)
  Receive Date: 20240831
  Receipt Date: 20250816
  Transmission Date: 20251021
  Serious: Yes (Other)
  Sender: ALEXION PHARMACEUTICALS
  Company Number: 2024A182701

PATIENT
  Age: 67 Year
  Sex: Female

DRUGS (1)
  1. BYDUREON BCISE [Suspect]
     Active Substance: EXENATIDE

REACTIONS (8)
  - Multiple sclerosis [Unknown]
  - Hiatus hernia [Unknown]
  - Pain [Unknown]
  - Blood glucose increased [Unknown]
  - Drug dose omission by device [Unknown]
  - Product colour issue [Unknown]
  - Device malfunction [Unknown]
  - Product packaging issue [Unknown]

NARRATIVE: CASE EVENT DATE: 20240809
